FAERS Safety Report 6381422-9 (Version None)
Quarter: 2009Q3

REPORT INFORMATION
  Report Type: 
  Country: None (occurrence: None)
  Receive Date: 20090929
  Receipt Date: 20090916
  Transmission Date: 20100115
  Serious: Yes (Hospitalization)
  Sender: FDA-Public Use
  Company Number: GB-AMGEN-QUU363812

PATIENT
  Sex: Male

DRUGS (4)
  1. NEULASTA [Suspect]
     Indication: CHEMOTHERAPY
     Route: 065
     Dates: start: 20080721
  2. NEUPOGEN [Suspect]
     Indication: CHEMOTHERAPY
  3. CARBOPLATIN [Concomitant]
     Dates: start: 20090721
  4. AVASTIN [Concomitant]
     Dates: start: 20090721

REACTIONS (6)
  - BODY TEMPERATURE INCREASED [None]
  - CONFUSIONAL STATE [None]
  - CYTOKINE STORM [None]
  - DELIRIUM [None]
  - DERMATITIS ALLERGIC [None]
  - PETECHIAE [None]
